FAERS Safety Report 6816488-2 (Version None)
Quarter: 2010Q3

REPORT INFORMATION
  Report Type: 
  Country: None (occurrence: None)
  Receive Date: 20100705
  Receipt Date: 20100622
  Transmission Date: 20110219
  Serious: Yes (Other)
  Sender: FDA-Public Use
  Company Number: PHHY2010CA38793

PATIENT
  Sex: Male

DRUGS (9)
  1. ALISKIREN ALI+ [Suspect]
     Indication: HYPERTENSION
     Dosage: 150 MG/DAILY
     Route: 048
     Dates: start: 20090611, end: 20091105
  2. ADALAT CC [Concomitant]
  3. TAMSULOSIN HCL [Concomitant]
  4. IMIPRAMINE HYDROCHLORIDE [Concomitant]
  5. DILAUDID [Concomitant]
  6. HYDROMORPHONE [Concomitant]
  7. CLONAZEPAM [Concomitant]
  8. LORAZEPAM [Concomitant]
  9. SYNTHROID [Concomitant]

REACTIONS (2)
  - BLOOD CREATININE INCREASED [None]
  - RENAL FAILURE CHRONIC [None]
